FAERS Safety Report 16564802 (Version 1)
Quarter: 2019Q3

REPORT INFORMATION
  Report Type: Spontaneous
  Country: FR (occurrence: FR)
  Receive Date: 20190712
  Receipt Date: 20190712
  Transmission Date: 20191004
  Serious: Yes (Life-Threatening)
  Sender: FDA-Public Use
  Company Number: FR-SA-2019SA187836

PATIENT
  Age: 75 Year
  Sex: Male

DRUGS (15)
  1. VILDAGLIPTINE [Concomitant]
     Active Substance: VILDAGLIPTIN
  2. AMIODARONE HYDROCHLORIDE. [Suspect]
     Active Substance: AMIODARONE HYDROCHLORIDE
     Indication: ARRHYTHMIA
     Dosage: 400 MG, QD
     Route: 048
  3. KARDEGIC [Suspect]
     Active Substance: ASPIRIN DL-LYSINE
     Indication: CORONARY ARTERY BYPASS
     Dosage: 75 MG, QD
     Route: 048
     Dates: start: 20190423, end: 20190527
  4. ULTIBRO BREEZHALER [Concomitant]
     Active Substance: GLYCOPYRRONIUM\INDACATEROL
  5. SALBUTAMOL [Concomitant]
     Active Substance: ALBUTEROL
  6. CLOPIDOGREL BISULFATE. [Suspect]
     Active Substance: CLOPIDOGREL BISULFATE
     Indication: CORONARY ARTERY BYPASS
     Dosage: 75 MG, QD
     Route: 048
     Dates: start: 20190423
  7. CANDESARTAN CILEXETIL. [Concomitant]
     Active Substance: CANDESARTAN CILEXETIL
  8. SITAGLIPTINE [Concomitant]
     Active Substance: SITAGLIPTIN
  9. OXAZEPAM. [Concomitant]
     Active Substance: OXAZEPAM
  10. ATORVASTATIN [Concomitant]
     Active Substance: ATORVASTATIN
  11. FUROSEMIDE. [Concomitant]
     Active Substance: FUROSEMIDE
  12. PREGABALINE [Concomitant]
     Active Substance: PREGABALIN
  13. PERMIXON [Concomitant]
     Active Substance: HERBALS\SAW PALMETTO
  14. LANSOPRAZOLE. [Concomitant]
     Active Substance: LANSOPRAZOLE
  15. BISOPROLOL FUMARATE. [Concomitant]
     Active Substance: BISOPROLOL FUMARATE

REACTIONS (2)
  - Haemoptysis [Recovered/Resolved]
  - Dyspnoea [Recovered/Resolved]

NARRATIVE: CASE EVENT DATE: 20190526
